FAERS Safety Report 6984845-X (Version None)
Quarter: 2010Q3

REPORT INFORMATION
  Report Type: 
  Country: None (occurrence: None)
  Receive Date: 20100915
  Receipt Date: 20100907
  Transmission Date: 20110219
  Serious: Yes (Other)
  Sender: FDA-Public Use
  Company Number: DE-PFIZER INC-2010112649

PATIENT
  Age: 68 Year
  Sex: Female

DRUGS (4)
  1. SORTIS [Suspect]
     Indication: HYPERCHOLESTEROLAEMIA
     Dosage: 1/2 40 MG TABLET IN THE EVENING
     Route: 048
  2. TENORMIN [Concomitant]
     Dosage: 1/2 50 MG TABLET TWICE DAILY
     Route: 048
  3. ASPIRIN [Concomitant]
     Dosage: 100, 1/2 OF TABLET AT NOON
     Route: 048
  4. BLOPRESS [Concomitant]
     Dosage: 8 MG, 1X/DAY
     Route: 048

REACTIONS (7)
  - ARTHRALGIA [None]
  - BLOOD CHOLESTEROL INCREASED [None]
  - BRONCHITIS [None]
  - DRUG INEFFECTIVE [None]
  - DYSPNOEA [None]
  - MACULOPATHY [None]
  - MYALGIA [None]
